FAERS Safety Report 7788966-3 (Version None)
Quarter: 2011Q3

REPORT INFORMATION
  Report Type: 
  Country: None (occurrence: None)
  Receive Date: 20110930
  Receipt Date: 20110926
  Transmission Date: 20111222
  Serious: Yes (Other)
  Sender: FDA-Public Use
  Company Number: PHHY2011FR85456

PATIENT
  Sex: Female

DRUGS (2)
  1. ZOMETA [Suspect]
     Indication: NEOPLASM MALIGNANT
     Dates: end: 20100701
  2. CHEMOTHERAPEUTICS [Concomitant]

REACTIONS (2)
  - PAIN IN JAW [None]
  - JOINT DISLOCATION [None]
